FAERS Safety Report 10856239 (Version 1)
Quarter: 2015Q1

REPORT INFORMATION
  Report Type: Spontaneous
  Country: RS (occurrence: RS)
  Receive Date: 20150223
  Receipt Date: 20150223
  Transmission Date: 20150721
  Serious: Yes (Other)
  Sender: FDA-Public Use
  Company Number: RS-MYLANLABS-2015M1005511

PATIENT

DRUGS (4)
  1. LORAZEPAM. [Concomitant]
     Active Substance: LORAZEPAM
     Indication: SCHIZOPHRENIA, PARANOID TYPE
     Dosage: 2.5MG 1+0+1
     Route: 065
  2. FLUPHENAZINE [Concomitant]
     Active Substance: FLUPHENAZINE
     Indication: SCHIZOPHRENIA, PARANOID TYPE
     Dosage: 25MG EVERY 30 DAYS
     Route: 030
  3. ERYTHROMYCIN. [Suspect]
     Active Substance: ERYTHROMYCIN
     Indication: BRONCHITIS
     Dosage: 1 G, QD
     Route: 065
  4. CHLORPROMAZINE [Concomitant]
     Active Substance: CHLORPROMAZINE
     Indication: SCHIZOPHRENIA, PARANOID TYPE
     Dosage: 25MG 1+1+2
     Route: 065

REACTIONS (1)
  - Psychiatric decompensation [Recovered/Resolved]
